FAERS Safety Report 5147382-3 (Version None)
Quarter: 2006Q4

REPORT INFORMATION
  Report Type: 
  Country: None (occurrence: None)
  Receive Date: 20061106
  Receipt Date: 20061030
  Transmission Date: 20070319
  Serious: Yes (Life-Threatening, Hospitalization)
  Sender: FDA-Public Use
  Company Number: 146878USA

PATIENT
  Age: 49 Year
  Sex: Male

DRUGS (6)
  1. FLUOROURACIL [Suspect]
     Indication: GASTROOESOPHAGEAL CANCER
     Dosage: (2010 MG), INTRAVENOUS DRIP
     Route: 041
     Dates: start: 20060407, end: 20060411
  2. FLUOROURACIL [Suspect]
     Indication: METASTATIC NEOPLASM
     Dosage: (2010 MG), INTRAVENOUS DRIP
     Route: 041
     Dates: start: 20060407, end: 20060411
  3. CISPLATIN [Suspect]
     Indication: GASTROOESOPHAGEAL CANCER
     Dosage: (201 MG), INTRAVENOUS DRIP
     Route: 041
     Dates: start: 20060407, end: 20060407
  4. CISPLATIN [Suspect]
     Indication: METASTATIC NEOPLASM
     Dosage: (201 MG), INTRAVENOUS DRIP
     Route: 041
     Dates: start: 20060407, end: 20060407
  5. HYDROCODONE [Concomitant]
  6. ONDANSETRON HCL [Concomitant]

REACTIONS (10)
  - ACUTE MYOCARDIAL INFARCTION [None]
  - BLOOD BICARBONATE DECREASED [None]
  - HYPONATRAEMIA [None]
  - MALAISE [None]
  - METABOLIC ACIDOSIS [None]
  - ORAL CANDIDIASIS [None]
  - RENAL FAILURE [None]
  - SINUS TACHYCARDIA [None]
  - SUPRAVENTRICULAR EXTRASYSTOLES [None]
  - VENTRICULAR FIBRILLATION [None]
